FAERS Safety Report 4535866-8 (Version None)
Quarter: 2004Q4

REPORT INFORMATION
  Report Type: 
  Country: None (occurrence: None)
  Receive Date: 20041223
  Receipt Date: 20041202
  Transmission Date: 20050328
  Serious: Yes (Life-Threatening, Hospitalization, Disabling)
  Sender: FDA-Public Use
  Company Number: PHHO2004CZ17123

PATIENT
  Age: 52 Year
  Sex: Female
  Weight: 67 kg

DRUGS (4)
  1. NEORAL [Suspect]
     Indication: RENAL TRANSPLANT
     Dosage: NOT REPORTED
     Route: 048
  2. STEROIDS NOS [Suspect]
     Indication: RENAL TRANSPLANT
     Dosage: NOT REPORTED
     Route: 048
  3. FTY720 VS MYCOPHENOLATE MOFETIL [Suspect]
     Indication: RENAL TRANSPLANT
     Dosage: 5 MG, UNK
     Route: 048
     Dates: start: 20040919, end: 20041110
  4. FTY720 VS MYCOPHENOLATE MOFETIL [Suspect]
     Dates: start: 20041210, end: 20041210

REACTIONS (18)
  - CYTOMEGALOVIRUS INFECTION [None]
  - DISEASE PROGRESSION [None]
  - DIVERTICULITIS [None]
  - GASTROINTESTINAL HAEMORRHAGE [None]
  - GRAFT DYSFUNCTION [None]
  - GRAFT INFECTION [None]
  - HERPES SIMPLEX [None]
  - HYPOTENSION [None]
  - LARGE INTESTINE PERFORATION [None]
  - LARYNGITIS [None]
  - LIFE SUPPORT [None]
  - NEPHRECTOMY [None]
  - NEPHROPATHY TOXIC [None]
  - PANCYTOPENIA [None]
  - PEPTIC ULCER [None]
  - PERITONITIS [None]
  - RENAL TUBULAR NECROSIS [None]
  - URINARY TRACT INFECTION [None]
